FAERS Safety Report 24785329 (Version 1)
Quarter: 2024Q4

REPORT INFORMATION
  Report Type: Spontaneous
  Country: ES (occurrence: ES)
  Receive Date: 20241228
  Receipt Date: 20241228
  Transmission Date: 20250115
  Serious: Yes (Other)
  Sender: AMGEN
  Company Number: ES-AMGEN-ESPSP2024251271

PATIENT
  Age: 26 Year
  Sex: Male

DRUGS (12)
  1. ARANESP [Suspect]
     Active Substance: DARBEPOETIN ALFA
     Indication: Haemoglobin decreased
     Dosage: 50 MICROGRAM, Q4WK
     Route: 065
  2. NEUPOGEN [Suspect]
     Active Substance: FILGRASTIM
     Indication: Neutropenia
     Dosage: 300 MILLIGRAM, TWICE A WEEK/12
     Route: 065
  3. SPIRONOLACTONE [Concomitant]
     Active Substance: SPIRONOLACTONE
     Indication: Ascites
     Dosage: UNK
  4. LAMIVUDINE [Concomitant]
     Active Substance: LAMIVUDINE
     Indication: HIV infection
  5. CELLCEPT [Concomitant]
     Active Substance: MYCOPHENOLATE MOFETIL
     Indication: HIV infection
     Dosage: UNK
  6. STAVUDINE [Concomitant]
     Active Substance: STAVUDINE
     Indication: HIV infection
     Dosage: UNK
  7. DIDANOSINE [Concomitant]
     Active Substance: DIDANOSINE
     Indication: HIV infection
     Dosage: UNK
  8. PROGRAF [Concomitant]
     Active Substance: TACROLIMUS
     Indication: Immunosuppressant drug therapy
     Dosage: 0.05 MILLIGRAM/KILOGRAM, Q12H
     Route: 065
  9. PROGRAF [Concomitant]
     Active Substance: TACROLIMUS
     Dosage: UNK,BETWEEN 10 AND 15 NG/ML OVER THE FIRST FEW WEEKS
  10. PROGRAF [Concomitant]
     Active Substance: TACROLIMUS
     Dosage: UNK,,BETWEEN 8 AND 12 NG/ML
  11. REBETOL [Concomitant]
     Active Substance: RIBAVIRIN
     Indication: HIV infection
     Dosage: 800 MILLIGRAM
  12. REBETOL [Concomitant]
     Active Substance: RIBAVIRIN
     Dosage: 1000 MILLIGRAM, QD

REACTIONS (5)
  - Neutropenia [Unknown]
  - Ascites [Unknown]
  - Hepatitis cholestatic [Unknown]
  - Hepatic cirrhosis [Unknown]
  - Influenza like illness [Unknown]
